FAERS Safety Report 11679380 (Version 2)
Quarter: 2015Q4

REPORT INFORMATION
  Report Type: Spontaneous
  Country: US (occurrence: US)
  Receive Date: 20151027
  Receipt Date: 20151104
  Transmission Date: 20160304
  Serious: Yes (Other)
  Sender: FDA-Public Use
  Company Number: US-ELI_LILLY_AND_COMPANY-US201007001761

PATIENT
  Age: 85 Year
  Sex: Female
  Weight: 56.24 kg

DRUGS (10)
  1. CALCIUM [Concomitant]
     Active Substance: CALCIUM
  2. FORTEO [Suspect]
     Active Substance: TERIPARATIDE
     Dosage: 20 UG, DAILY (1/D)
  3. FORTEO [Suspect]
     Active Substance: TERIPARATIDE
     Indication: OSTEOPOROSIS
     Dosage: 20 UG, DAILY (1/D)
     Route: 058
     Dates: end: 20101018
  4. LASIX [Concomitant]
     Active Substance: FUROSEMIDE
     Dosage: 40 MG, UNKNOWN
     Route: 065
  5. BENAZEPRIL [Concomitant]
     Active Substance: BENAZEPRIL HYDROCHLORIDE
     Indication: HYPERTENSION
     Dosage: 40 MG, DAILY (1/D)
     Route: 065
  6. VASOPRIL /00915302/ [Concomitant]
  7. MULTIVITAMIN [Concomitant]
     Active Substance: VITAMINS
     Dosage: UNK, UNKNOWN
     Route: 065
  8. TYLENOL [Concomitant]
     Active Substance: ACETAMINOPHEN
     Dosage: UNK, UNKNOWN
     Route: 065
  9. CALCIUM + VITAMIN D [Concomitant]
     Active Substance: CALCIUM\VITAMIN D
     Dosage: UNK, UNKNOWN
     Route: 065
  10. GLUCOSAMINE CHONDROITIN [Concomitant]
     Active Substance: CHONDROITIN SULFATE (BOVINE)\GLUCOSAMINE HYDROCHLORIDE
     Dosage: UNK, UNKNOWN
     Route: 065

REACTIONS (13)
  - Anxiety [Unknown]
  - Blood pressure increased [Unknown]
  - Pain in extremity [Unknown]
  - Fatigue [Unknown]
  - Fracture [Unknown]
  - Hypercalcaemia [Recovered/Resolved]
  - Fall [Recovered/Resolved]
  - Nerve injury [Recovering/Resolving]
  - Calcium deficiency [Recovering/Resolving]
  - Hypoaesthesia [Unknown]
  - Nodule [Unknown]
  - Syncope [Unknown]
  - Arthralgia [Unknown]

NARRATIVE: CASE EVENT DATE: 20101013
